FAERS Safety Report 8507190-X (Version None)
Quarter: 2012Q3

REPORT INFORMATION
  Report Type: 
  Country: None (occurrence: None)
  Receive Date: 20120712
  Receipt Date: 20120627
  Transmission Date: 20120928
  Serious: Yes (Other)
  Sender: FDA-Public Use
  Company Number: CHPA2012US006648

PATIENT
  Age: 52 Year
  Sex: Female

DRUGS (3)
  1. EXCEDRIN EXTRA STRENGTH TABLETS [Suspect]
     Indication: PROPHYLAXIS
     Dosage: 1 DF, QD
     Route: 048
     Dates: start: 19960101
  2. EXCEDRIN EXTRA STRENGTH TABLETS [Suspect]
     Dosage: 1 DF, PRN
     Route: 048
  3. PROGESTERONE [Concomitant]
     Dosage: UNK, UNK

REACTIONS (10)
  - INCORRECT DRUG ADMINISTRATION DURATION [None]
  - MULTIPLE SCLEROSIS [None]
  - INCORRECT DOSE ADMINISTERED [None]
  - HYPERTENSION [None]
  - VAGINAL HAEMORRHAGE [None]
  - ANAEMIA [None]
  - UTERINE LEIOMYOMA [None]
  - HEADACHE [None]
  - OVERDOSE [None]
  - OFF LABEL USE [None]
